FAERS Safety Report 6066687-5 (Version None)
Quarter: 2009Q1

REPORT INFORMATION
  Report Type: 
  Country: None (occurrence: None)
  Receive Date: 20090205
  Receipt Date: 20080208
  Transmission Date: 20090719
  Serious: No
  Sender: FDA-Public Use
  Company Number: US-ABBOTT-08P-163-0437605-00

PATIENT
  Sex: Female
  Weight: 66.738 kg

DRUGS (1)
  1. VICODIN [Suspect]
     Indication: PAIN
     Route: 048
     Dates: start: 19920101

REACTIONS (2)
  - DYSPNOEA [None]
  - HEART RATE INCREASED [None]
